FAERS Safety Report 4724378-4 (Version None)
Quarter: 2005Q3

REPORT INFORMATION
  Report Type: 
  Country: None (occurrence: None)
  Receive Date: 20050722
  Receipt Date: 20050715
  Transmission Date: 20060218
  Serious: Yes (Hospitalization, Other)
  Sender: FDA-Public Use
  Company Number: HQWYE227515JUL05

PATIENT
  Age: 2 Year
  Sex: Female

DRUGS (7)
  1. ARTANE [Suspect]
     Dosage: ORAL
     Route: 048
     Dates: start: 20050712, end: 20050712
  2. AKINETON [Suspect]
     Dosage: ORAL
     Route: 048
     Dates: start: 20050712, end: 20050712
  3. CARBAMAZEPINE [Suspect]
     Dosage: ORAL
     Route: 048
     Dates: start: 20050712, end: 20050712
  4. FLUNITRAZEPAM (FLUNITRAZEPAM, ) [Suspect]
     Dosage: ORAL
     Route: 048
     Dates: start: 20050712, end: 20050712
  5. LEVOTOMIN (LEVOMEPROMAZINE MALEATE) [Suspect]
     Dosage: ORAL
     Route: 048
     Dates: start: 20050712, end: 20050712
  6. PYRETHIA (PROMETHAZINE HYDROCHLORIDE, ) [Suspect]
     Dosage: ORAL
     Route: 048
     Dates: start: 20050712, end: 20050712
  7. RIVOTRIL (CLONAZEPAM, ) [Suspect]
     Dosage: ORAL
     Route: 048
     Dates: start: 20050712, end: 20050712

REACTIONS (4)
  - ACCIDENTAL DRUG INTAKE BY CHILD [None]
  - COORDINATION ABNORMAL [None]
  - DEPRESSED LEVEL OF CONSCIOUSNESS [None]
  - MULTIPLE DRUG OVERDOSE ACCIDENTAL [None]
